FAERS Safety Report 9168315 (Version 1)
Quarter: 2013Q1

REPORT INFORMATION
  Report Type: Spontaneous
  Country: US (occurrence: None)
  Receive Date: 20130313
  Receipt Date: 20130313
  Transmission Date: 20140127
  Serious: Yes (Hospitalization)
  Sender: FDA-Public Use
  Company Number: None

PATIENT
  Age: 62 Year
  Sex: Female
  Weight: 83 kg

DRUGS (2)
  1. BEVACIZUMAB [Suspect]
     Indication: GLIOBLASTOMA
     Dosage: 10MG/KG DAYS 1 + 15 IV
     Dates: start: 20130109, end: 20130228
  2. CARBOPLATIN [Suspect]
     Indication: GLIOBLASTOMA
     Dosage: AUC 6 DAY 1 IV
     Dates: start: 20130109

REACTIONS (3)
  - Thrombocytopenia [None]
  - Asthenia [None]
  - Muscular weakness [None]
